FAERS Safety Report 5896515-X (Version None)
Quarter: 2008Q3

REPORT INFORMATION
  Report Type: 
  Country: None (occurrence: None)
  Receive Date: 20080924
  Receipt Date: 20071018
  Transmission Date: 20090109
  Serious: Yes (Hospitalization, Other)
  Sender: FDA-Public Use
  Company Number: US-BAYER-200712244BWH

PATIENT
  Age: 57 Year
  Sex: Female
  Weight: 107 kg

DRUGS (8)
  1. AVELOX [Suspect]
     Indication: SINUSITIS
     Dosage: TOTAL DAILY DOSE: 400 MG  UNIT DOSE: 400 MG
     Route: 048
     Dates: start: 20070618, end: 20070618
  2. SYNTHROID [Concomitant]
     Dates: start: 19970101
  3. ASACOL [Concomitant]
  4. LISINOPRIL AND HYDROCHLOROTHIAZIDE [Concomitant]
     Dates: start: 20060101
  5. LOVASTATIN [Concomitant]
     Dates: start: 20060101
  6. CYMBALTA [Concomitant]
     Dosage: TOTAL DAILY DOSE: 120 MG
     Dates: start: 20060101
  7. MORPHINE SULFATE [Concomitant]
  8. MORPHINE SULFATE [Concomitant]
     Dates: start: 20060101

REACTIONS (3)
  - ANAPHYLACTIC REACTION [None]
  - HYPERHIDROSIS [None]
  - ILL-DEFINED DISORDER [None]
